FAERS Safety Report 22273948 (Version 1)
Quarter: 2023Q2

REPORT INFORMATION
  Report Type: Spontaneous
  Country: US (occurrence: None)
  Receive Date: 20230501
  Receipt Date: 20230501
  Transmission Date: 20230722
  Serious: Yes (Hospitalization)
  Sender: FDA-Public Use
  Company Number: None

PATIENT
  Age: 34 Year
  Sex: Male
  Weight: 74.8 kg

DRUGS (13)
  1. ETOPOSIDE [Suspect]
     Active Substance: ETOPOSIDE
     Indication: Brain neoplasm malignant
     Dosage: OTHER FREQUENCY : 21D PN 7D OFF;?
     Route: 048
  2. CLOBETASOL [Concomitant]
  3. DICLOFENAC [Concomitant]
     Active Substance: DICLOFENAC
  4. CYCLOBENZAPRINE [Concomitant]
  5. DEXAMETHASONE [Concomitant]
  6. GABAPENTIN [Concomitant]
  7. NORCO [Concomitant]
     Active Substance: ACETAMINOPHEN\HYDROCODONE BITARTRATE
  8. HYDROXYZINE [Concomitant]
     Active Substance: HYDROXYZINE HYDROCHLORIDE
  9. KEPPRA [Concomitant]
     Active Substance: LEVETIRACETAM
  10. LACOSAMIDE [Concomitant]
     Active Substance: LACOSAMIDE
  11. LIDOCAINE [Concomitant]
     Active Substance: LIDOCAINE
  12. ONDANSETRON [Concomitant]
  13. OTEZLA [Concomitant]
     Active Substance: APREMILAST

REACTIONS (2)
  - Pneumonia [None]
  - Therapy interrupted [None]
